FAERS Safety Report 7718599-6 (Version None)
Quarter: 2011Q3

REPORT INFORMATION
  Report Type: 
  Country: None (occurrence: None)
  Receive Date: 20110830
  Receipt Date: 20110727
  Transmission Date: 20111222
  Serious: No
  Sender: FDA-Public Use
  Company Number: US-BAYER-2011-066377

PATIENT
  Sex: Female

DRUGS (1)
  1. AVELOX [Suspect]
     Indication: SINUSITIS
     Dosage: UNK
     Route: 048
     Dates: start: 20110118

REACTIONS (4)
  - PAIN IN EXTREMITY [None]
  - TENDONITIS [None]
  - WEIGHT INCREASED [None]
  - OEDEMA PERIPHERAL [None]
